FAERS Safety Report 13549296 (Version 1)
Quarter: 2017Q2

REPORT INFORMATION
  Report Type: Report from Study
  Country: US (occurrence: US)
  Receive Date: 20170516
  Receipt Date: 20170516
  Transmission Date: 20170830
  Serious: Yes (Hospitalization, Other)
  Sender: FDA-Public Use
  Company Number: US-GILEAD-2017-0272853

PATIENT
  Age: 67 Year
  Sex: Male

DRUGS (14)
  1. AMBRISENTAN [Suspect]
     Active Substance: AMBRISENTAN
     Indication: PULMONARY HYPERTENSION
     Dosage: 10 MG, QD
     Route: 065
     Dates: start: 20161123
  2. GABAPENTIN. [Concomitant]
     Active Substance: GABAPENTIN
  3. METOLAZONE. [Concomitant]
     Active Substance: METOLAZONE
  4. PHAZYME                            /00164001/ [Concomitant]
  5. SODIUM CHLORIDE. [Concomitant]
     Active Substance: SODIUM CHLORIDE
  6. ASPIRIN                            /00002701/ [Concomitant]
     Active Substance: ASPIRIN
  7. LISINOPRIL. [Concomitant]
     Active Substance: LISINOPRIL
  8. WARFARIN [Concomitant]
     Active Substance: WARFARIN
  9. ATENOLOL. [Concomitant]
     Active Substance: ATENOLOL
  10. SIMETHICONE (DIMETHICONE) [Concomitant]
     Active Substance: DIMETHICONE
  11. VIAGRA [Concomitant]
     Active Substance: SILDENAFIL CITRATE
  12. FUROSEMIDE. [Suspect]
     Active Substance: FUROSEMIDE
     Indication: PRODUCT USED FOR UNKNOWN INDICATION
     Dosage: UNK
     Route: 065
  13. PANTOPRAZOLE [Concomitant]
     Active Substance: PANTOPRAZOLE
  14. MULTAQ [Concomitant]
     Active Substance: DRONEDARONE

REACTIONS (3)
  - Dyspnoea [Recovered/Resolved]
  - Renal impairment [Unknown]
  - Fluid retention [Recovered/Resolved]

NARRATIVE: CASE EVENT DATE: 20170510
